FAERS Safety Report 4820971-9 (Version None)
Quarter: 2005Q4

REPORT INFORMATION
  Report Type: 
  Country: None (occurrence: None)
  Receive Date: 20051103
  Receipt Date: 20051026
  Transmission Date: 20060501
  Serious: Yes (Other)
  Sender: FDA-Public Use
  Company Number: 163-20785-05090377

PATIENT
  Age: 67 Year
  Sex: Female

DRUGS (6)
  1. THALOMID [Suspect]
     Indication: MULTIPLE MYELOMA
     Dosage: 100 MG DAILY ORAL
     Route: 048
     Dates: start: 20050714, end: 20050822
  2. COUMADIN [Suspect]
     Indication: THROMBOSIS PROPHYLAXIS
     Dosage: 2 MG DAILY
     Dates: start: 20050101, end: 20050101
  3. DARVOCET [Concomitant]
  4. AMBIEN [Concomitant]
  5. COMPAZINE [Concomitant]
  6. ZOMETA [Concomitant]

REACTIONS (1)
  - SUBARACHNOID HAEMORRHAGE [None]
